FAERS Safety Report 18681255 (Version 1)
Quarter: 2020Q4

REPORT INFORMATION
  Report Type: Spontaneous
  Country: US (occurrence: US)
  Receive Date: 20201229
  Receipt Date: 20201229
  Transmission Date: 20210114
  Serious: Yes (Hospitalization)
  Sender: FDA-Public Use
  Company Number: None

PATIENT
  Age: 45 Year
  Sex: Male
  Weight: 115.4 kg

DRUGS (1)
  1. BAMLANIVIMAB. [Suspect]
     Active Substance: BAMLANIVIMAB
     Indication: COVID-19
     Dosage: ?          OTHER FREQUENCY:ONCE;?
     Route: 042
     Dates: start: 20201221, end: 20201221

REACTIONS (5)
  - Infusion related reaction [None]
  - Dyspnoea [None]
  - Pharyngeal swelling [None]
  - Erythema [None]
  - Skin warm [None]

NARRATIVE: CASE EVENT DATE: 20201221
